FAERS Safety Report 6421142 (Version 2)
Quarter: 2013Q1

REPORT INFORMATION
  Report Type: Spontaneous
  Country: NL (occurrence: None)
  Receive Date: 20070906
  Receipt Date: 20130108
  Transmission Date: 20140127
  Serious: Yes (Life-Threatening, Hospitalization, Other)
  Sender: FDA-Public Use
  Company Number: 2007US-09131

PATIENT
  Age: 30 Year
  Sex: Male

DRUGS (1)
  1. VERAPAMIL [Suspect]
     Indication: PRODUCT USED FOR UNKNOWN INDICATION
     Dosage: 80 MG, 60 TABS IN 1 DOSE, ORAL
     Route: 048

REACTIONS (18)
  - Tongue biting [None]
  - Coma scale abnormal [None]
  - Pulmonary congestion [None]
  - Toxicity to various agents [None]
  - Sepsis [None]
  - Diabetic ketoacidosis [None]
  - Hypokalaemia [None]
  - Intentional overdose [None]
  - Cardiogenic shock [None]
  - Hyperglycaemia [None]
  - Metabolic acidosis [None]
  - Hypotension [None]
  - Bradycardia [None]
  - Lethargy [None]
  - Somnolence [None]
  - Hypophosphataemia [None]
  - Anuria [None]
  - Incontinence [None]
